FAERS Safety Report 8420077-6 (Version None)
Quarter: 2012Q2

REPORT INFORMATION
  Report Type: 
  Country: None (occurrence: None)
  Receive Date: 20120323
  Receipt Date: 20111116
  Transmission Date: 20120825
  Serious: Yes (Life-Threatening, Hospitalization)
  Sender: FDA-Public Use
  Company Number: 163-21880-11112563

PATIENT
  Age: 73 Year
  Sex: Female
  Weight: 87.5442 kg

DRUGS (11)
  1. LORAZEPAM [Concomitant]
  2. COMPAZINE [Concomitant]
  3. REVLIMID [Suspect]
     Indication: MULTIPLE MYELOMA
     Dosage: 10 MG, X21 DAYS, OFF X7 DAYS, PO
     Route: 048
     Dates: start: 20110109
  4. ZOFRAN [Concomitant]
  5. CRESTOR [Concomitant]
  6. PERCOCET [Concomitant]
  7. PRILOSEC [Concomitant]
  8. VALTREX [Concomitant]
  9. ATENOLOL [Concomitant]
  10. DILTIAZEM [Concomitant]
  11. HYDROCHLOROTHIAZIDE [Concomitant]

REACTIONS (2)
  - RASH [None]
  - THROMBOSIS [None]
